FAERS Safety Report 25109088 (Version 2)
Quarter: 2025Q1

REPORT INFORMATION
  Report Type: Report from Study
  Country: GB (occurrence: GB)
  Receive Date: 20250322
  Receipt Date: 20250327
  Transmission Date: 20250409
  Serious: Yes (Other)
  Sender: ABBVIE
  Company Number: GB-ABBVIE-6181899

PATIENT
  Sex: Female

DRUGS (1)
  1. SKYRIZI [Suspect]
     Active Substance: RISANKIZUMAB-RZAA
     Indication: Psoriasis
     Dosage: FORM STRENGTH 150MG/1ML
     Route: 058

REACTIONS (10)
  - Cellulitis [Unknown]
  - Wound infection [Unknown]
  - Wound complication [Unknown]
  - Peripheral swelling [Unknown]
  - Skin tightness [Unknown]
  - Skin disorder [Unknown]
  - Erythema [Unknown]
  - Limb injury [Unknown]
  - Wound dehiscence [Unknown]
  - Alcoholism [Unknown]
